FAERS Safety Report 7969546 (Version 2)
Quarter: 2013Q2

REPORT INFORMATION
  Report Type: Report from Study
  Country: US (occurrence: US)
  Receive Date: 20110601
  Receipt Date: 20130430
  Transmission Date: 20140414
  Serious: Yes (Hospitalization)
  Sender: FDA-Public Use
  Company Number: US-ACTELION-A-US2011-49102

PATIENT
  Age: 65 Year
  Sex: Female

DRUGS (3)
  1. TRACLEER [Suspect]
     Indication: PULMONARY ARTERIAL HYPERTENSION
     Dosage: UNK
     Route: 048
     Dates: start: 20091031
  2. REVATIO [Concomitant]
  3. REMODULIN [Concomitant]

REACTIONS (3)
  - Blood potassium decreased [Unknown]
  - Fluid retention [Unknown]
  - Local swelling [Recovered/Resolved]
